FAERS Safety Report 5065802-X (Version None)
Quarter: 2006Q3

REPORT INFORMATION
  Report Type: 
  Country: None (occurrence: None)
  Receive Date: 20060731
  Receipt Date: 20060721
  Transmission Date: 20061208
  Serious: Yes (Other)
  Sender: FDA-Public Use
  Company Number: US-GLAXOSMITHKLINE-A0613281A

PATIENT
  Age: 60 Year
  Sex: Female

DRUGS (3)
  1. BEANO TABLETS [Suspect]
     Indication: FLATULENCE
     Route: 048
     Dates: start: 20060714, end: 20060714
  2. CALCIUM GLUCONATE [Concomitant]
  3. MULTIVITAMIN [Concomitant]

REACTIONS (11)
  - DEHYDRATION [None]
  - DIARRHOEA [None]
  - DIZZINESS [None]
  - EATING DISORDER [None]
  - FATIGUE [None]
  - GASTROENTERITIS [None]
  - HYPERHIDROSIS [None]
  - MALAISE [None]
  - NAUSEA [None]
  - PAROSMIA [None]
  - VOMITING [None]
